FAERS Safety Report 9216331 (Version 7)
Quarter: 2014Q1

REPORT INFORMATION
  Report Type: Report from Study
  Country: BE (occurrence: BE)
  Receive Date: 20130408
  Receipt Date: 20140114
  Transmission Date: 20141002
  Serious: Yes (Hospitalization)
  Sender: FDA-Public Use
  Company Number: PHHO2013BE004854

PATIENT
  Sex: 0

DRUGS (3)
  1. ACZ885 [Suspect]
     Indication: CRYOPYRIN ASSOCIATED PERIODIC SYNDROME
     Dosage: 10 MG/KG, UNK
     Route: 058
     Dates: start: 20121219
  2. VERMOX [Concomitant]
     Indication: ENTEROBIASIS
     Dosage: 100 MG, BID
     Route: 048
     Dates: start: 20120312
  3. FUCICORT [Concomitant]
     Indication: MOLLUSCUM CONTAGIOSUM
     Dosage: 15 G, PRN
     Route: 061
     Dates: start: 20130312

REACTIONS (1)
  - Pneumonia [Recovered/Resolved]
